FAERS Safety Report 10241899 (Version 1)
Quarter: 2014Q1

REPORT INFORMATION
  Report Type: Spontaneous
  Country: US (occurrence: None)
  Receive Date: 20140306
  Receipt Date: 20140306
  Transmission Date: 20141002
  Serious: Yes (Disabling, Other)
  Sender: FDA-Public Use
  Company Number: 163-21880-13112862

PATIENT
  Age: 81 Year
  Sex: Male

DRUGS (1)
  1. REVLIMID (LENALIDOMIDE) (15 MILLIGRAM, CAPSULES) [Suspect]
     Indication: PLASMA CELL MYELOMA
     Dosage: 15 MG, 10 IN 28 D, PO
     Route: 048
     Dates: start: 20130906, end: 20131025

REACTIONS (3)
  - Neuropathy peripheral [None]
  - Deep vein thrombosis [None]
  - Rash [None]
